FAERS Safety Report 19727719 (Version 3)
Quarter: 2021Q4

REPORT INFORMATION
  Report Type: Spontaneous
  Country: RU (occurrence: RU)
  Receive Date: 20210820
  Receipt Date: 20211222
  Transmission Date: 20220303
  Serious: Yes (Death)
  Sender: FDA-Public Use
  Company Number: RU-JNJFOC-20210832677

PATIENT
  Age: 55 Year
  Sex: Male
  Weight: 92 kg

DRUGS (8)
  1. SIRTURO [Suspect]
     Active Substance: BEDAQUILINE FUMARATE
     Indication: Tuberculosis
     Route: 048
     Dates: start: 20210415
  2. SIRTURO [Suspect]
     Active Substance: BEDAQUILINE FUMARATE
     Route: 048
     Dates: start: 20210522
  3. SIRTURO [Suspect]
     Active Substance: BEDAQUILINE FUMARATE
     Route: 048
     Dates: start: 20210809
  4. LEVOFLOXACIN [Suspect]
     Active Substance: LEVOFLOXACIN
     Indication: Tuberculosis
     Route: 048
     Dates: start: 20210415
  5. LINEZOLID [Suspect]
     Active Substance: LINEZOLID
     Indication: Tuberculosis
     Route: 048
     Dates: start: 20210415
  6. CLOFAZIMINE [Suspect]
     Active Substance: CLOFAZIMINE
     Indication: Tuberculosis
     Route: 048
     Dates: start: 20210415
  7. VITAMIN B6 [Concomitant]
     Active Substance: PYRIDOXINE HYDROCHLORIDE
     Indication: Prophylaxis
     Route: 065
     Dates: start: 20210415
  8. ADEMETIONINE [Concomitant]
     Active Substance: ADEMETIONINE
     Indication: Prophylaxis
     Route: 065
     Dates: start: 20210514

REACTIONS (2)
  - Cardiomyopathy alcoholic [Fatal]
  - Pneumonia [Fatal]

NARRATIVE: CASE EVENT DATE: 20210811
